FAERS Safety Report 7671573-0 (Version None)
Quarter: 2011Q3

REPORT INFORMATION
  Report Type: 
  Country: None (occurrence: None)
  Receive Date: 20110809
  Receipt Date: 20110803
  Transmission Date: 20111222
  Serious: Yes (Hospitalization)
  Sender: FDA-Public Use
  Company Number: SE-BAYER-2011-069084

PATIENT
  Age: 50 Year
  Sex: Male
  Weight: 85 kg

DRUGS (4)
  1. METRONIDAZOLE [Suspect]
     Indication: APPENDICITIS
     Dosage: DAILY DOSE 1 G
     Dates: start: 20100501, end: 20100501
  2. CEFOTAXIME [Concomitant]
     Indication: APPENDICITIS
     Dosage: 1 G, TID
     Route: 042
  3. METRONIDAZOLE [Suspect]
     Dosage: 400 MG, TID
     Route: 048
     Dates: start: 20100501
  4. CIPROFLOXACIN HYDROCHLORIDE [Suspect]
     Indication: APPENDICITIS
     Dosage: 500 MG, BID
     Route: 048
     Dates: start: 20100501

REACTIONS (9)
  - ATAXIA [None]
  - BALANCE DISORDER [None]
  - DEAFNESS [None]
  - ENCEPHALOPATHY [None]
  - DYSARTHRIA [None]
  - LOSS OF CONSCIOUSNESS [None]
  - VOMITING [None]
  - FATIGUE [None]
  - DIZZINESS [None]
